FAERS Safety Report 16780644 (Version 4)
Quarter: 2020Q1

REPORT INFORMATION
  Report Type: Spontaneous
  Country: MX (occurrence: MX)
  Receive Date: 20190906
  Receipt Date: 20200218
  Transmission Date: 20200409
  Serious: Yes (Other)
  Sender: FDA-Public Use
  Company Number: MX-ASTRAZENECA-2019SE72624

PATIENT
  Age: 735 Month
  Sex: Female
  Weight: 63 kg

DRUGS (6)
  1. XIGDUO XR [Interacting]
     Active Substance: DAPAGLIFLOZIN PROPANEDIOL\METFORMIN HYDROCHLORIDE
     Indication: TYPE 2 DIABETES MELLITUS
     Dosage: 10/1000 MG, 10 MG DAILY
     Route: 048
     Dates: start: 20190402
  2. ASPIRINA PROTECT [Concomitant]
     Active Substance: ASPIRIN
     Indication: HYPERTENSION
     Route: 048
     Dates: start: 201902
  3. XIGDUO XR [Suspect]
     Active Substance: DAPAGLIFLOZIN PROPANEDIOL\METFORMIN HYDROCHLORIDE
     Indication: TYPE 2 DIABETES MELLITUS
     Dosage: 10/1000 MG, 10 MG EVERY 12 HOURS
     Route: 048
     Dates: start: 20190101, end: 20190401
  4. AMLODOPINO [Concomitant]
     Indication: HYPERTENSION
     Route: 048
     Dates: start: 201901
  5. CONCOR [Interacting]
     Active Substance: BISOPROLOL FUMARATE
     Indication: HYPERTENSION
     Route: 048
     Dates: start: 201901
  6. METFORMINA [Concomitant]
     Active Substance: METFORMIN HYDROCHLORIDE
     Indication: DIABETES MELLITUS
     Route: 048
     Dates: start: 201901

REACTIONS (16)
  - Blood glucose decreased [Recovered/Resolved]
  - Blood pressure increased [Unknown]
  - Amnesia [Unknown]
  - Dyspepsia [Recovered/Resolved]
  - Varicose vein [Unknown]
  - Fatigue [Recovered/Resolved]
  - Weight increased [Recovered/Resolved]
  - Overdose [Recovered/Resolved]
  - Drug interaction [Unknown]
  - Peripheral swelling [Recovered/Resolved]
  - Blood glucose increased [Not Recovered/Not Resolved]
  - Nephrolithiasis [Unknown]
  - Malaise [Unknown]
  - Kidney infection [Unknown]
  - Gastritis [Unknown]
  - Incorrect dose administered [Not Recovered/Not Resolved]

NARRATIVE: CASE EVENT DATE: 201901
